FAERS Safety Report 22294286 (Version 1)
Quarter: 2023Q2

REPORT INFORMATION
  Report Type: Spontaneous
  Country: QA (occurrence: QA)
  Receive Date: 20230508
  Receipt Date: 20230508
  Transmission Date: 20230721
  Serious: Yes (Hospitalization, Other)
  Sender: FDA-Public Use
  Company Number: QA-GLAXOSMITHKLINE-QA2023GSK064208

PATIENT
  Age: 65 Year
  Sex: Female

DRUGS (1)
  1. DICLOFENAC SODIUM [Suspect]
     Active Substance: DICLOFENAC SODIUM
     Indication: Back pain
     Dosage: 75 MG, UNKNOWN
     Route: 030

REACTIONS (9)
  - Embolia cutis medicamentosa [Recovered/Resolved]
  - Skin discolouration [Recovered/Resolved]
  - Injection site pain [Recovered/Resolved]
  - Pallor [Recovered/Resolved]
  - Injection site swelling [Recovered/Resolved]
  - Erythema [Recovered/Resolved]
  - Induration [Recovered/Resolved]
  - Musculoskeletal pain [Recovered/Resolved]
  - Condition aggravated [Recovered/Resolved]
